FAERS Safety Report 8346460-5 (Version None)
Quarter: 2012Q2

REPORT INFORMATION
  Report Type: 
  Country: None (occurrence: None)
  Receive Date: 20120509
  Receipt Date: 20120504
  Transmission Date: 20120825
  Serious: Yes (Other)
  Sender: FDA-Public Use
  Company Number: US-PFIZER INC-2012110456

PATIENT
  Sex: Female
  Weight: 102.04 kg

DRUGS (6)
  1. PRISTIQ [Suspect]
     Indication: NEUROPATHY PERIPHERAL
     Dosage: 50 MG, 1X/DAY
     Route: 048
     Dates: start: 20111201, end: 20120201
  2. LISINOPRIL [Concomitant]
     Indication: HYPERTENSION
     Dosage: 20 MG, 1X/DAY
  3. TEMAZEPAM [Concomitant]
     Indication: SLEEP DISORDER
     Dosage: 30 MG, 1X/DAY
  4. SIMVASTATIN [Concomitant]
     Dosage: 20 MG, 1X/DAY
  5. OMEPRAZOLE [Concomitant]
     Dosage: 40 MG, UNK
  6. ESTRADIOL [Concomitant]
     Dosage: 2 MG, UNK

REACTIONS (2)
  - NEUROPATHY PERIPHERAL [None]
  - PAIN IN EXTREMITY [None]
